FAERS Safety Report 8570303-8 (Version None)
Quarter: 2012Q3

REPORT INFORMATION
  Report Type: 
  Country: None (occurrence: None)
  Receive Date: 20120803
  Receipt Date: 20120706
  Transmission Date: 20120928
  Serious: No
  Sender: FDA-Public Use
  Company Number: US-ASTRAZENECA-2012SE46710

PATIENT
  Age: 46 Year
  Sex: Female

DRUGS (5)
  1. SEROQUEL XR [Suspect]
     Route: 048
  2. INVEGA SUSTENNA [Suspect]
  3. PROPRANOLOL [Concomitant]
  4. WELLBUTRIN [Concomitant]
  5. BENAZEPRINE [Concomitant]

REACTIONS (2)
  - DYSPHEMIA [None]
  - ANXIETY [None]
